FAERS Safety Report 18393378 (Version 1)
Quarter: 2020Q4

REPORT INFORMATION
  Report Type: Spontaneous
  Country: CA (occurrence: CA)
  Receive Date: 20201016
  Receipt Date: 20201016
  Transmission Date: 20210114
  Serious: Yes (Other)
  Sender: FDA-Public Use
  Company Number: CA-JNJFOC-20201024140

PATIENT
  Age: 26 Year
  Sex: Male

DRUGS (3)
  1. FENTANYL. [Concomitant]
     Active Substance: FENTANYL
     Indication: SEDATIVE THERAPY
     Route: 042
  2. MIDAZOLAM. [Concomitant]
     Active Substance: MIDAZOLAM
     Indication: SEDATIVE THERAPY
     Route: 042
  3. REMICADE [Suspect]
     Active Substance: INFLIXIMAB
     Indication: CROHN^S DISEASE
     Route: 042

REACTIONS (9)
  - Anorectal swelling [Not Recovered/Not Resolved]
  - Pyrexia [Unknown]
  - Rectal ulcer [Unknown]
  - C-reactive protein increased [Unknown]
  - Inappropriate schedule of product administration [Unknown]
  - Respiratory symptom [Unknown]
  - Anaemia [Unknown]
  - Condition aggravated [Unknown]
  - Influenza [Unknown]
